FAERS Safety Report 15113747 (Version 7)
Quarter: 2021Q4

REPORT INFORMATION
  Report Type: Spontaneous
  Country: US (occurrence: US)
  Receive Date: 20180706
  Receipt Date: 20211102
  Transmission Date: 20220303
  Serious: No
  Sender: FDA-Public Use
  Company Number: US-PFIZER INC-2017190647

PATIENT
  Age: 49 Year
  Sex: Female
  Weight: 54.43 kg

DRUGS (10)
  1. XELJANZ [Suspect]
     Active Substance: TOFACITINIB CITRATE
     Indication: Eczema
     Dosage: 5 MG, 2X/DAY
     Route: 048
     Dates: start: 2018
  2. XELJANZ [Suspect]
     Active Substance: TOFACITINIB CITRATE
     Indication: Food allergy
  3. XELJANZ [Suspect]
     Active Substance: TOFACITINIB CITRATE
     Indication: Dermatitis atopic
  4. XELJANZ [Suspect]
     Active Substance: TOFACITINIB CITRATE
     Indication: Dermatitis
  5. XELJANZ [Suspect]
     Active Substance: TOFACITINIB CITRATE
     Indication: Pruritus
  6. XELJANZ [Suspect]
     Active Substance: TOFACITINIB CITRATE
     Indication: Inflammation
  7. SERTRALINE [Concomitant]
     Active Substance: SERTRALINE HYDROCHLORIDE
     Indication: Anxiety
     Dosage: 100 MG, 1X/DAY
  8. XANAX [Concomitant]
     Active Substance: ALPRAZOLAM
     Indication: Anxiety
     Dosage: 0.25 MG, AS NEEDED (PRN)
  9. DIPHENHYDRAMINE HYDROCHLORIDE [Concomitant]
     Active Substance: DIPHENHYDRAMINE HYDROCHLORIDE
     Dosage: 25 MG
  10. BENADRYL [Concomitant]
     Active Substance: DIPHENHYDRAMINE HYDROCHLORIDE
     Dosage: UNK
     Dates: start: 2012

REACTIONS (8)
  - Off label use [Unknown]
  - Therapeutic response unexpected [Recovering/Resolving]
  - Alopecia [Unknown]
  - Feeling abnormal [Unknown]
  - Rash pruritic [Unknown]
  - Sleep disorder [Unknown]
  - Pain [Recovering/Resolving]
  - Stomatitis [Unknown]
